FAERS Safety Report 16956405 (Version 1)
Quarter: 2019Q4

REPORT INFORMATION
  Report Type: Spontaneous
  Country: IN (occurrence: IN)
  Receive Date: 20191024
  Receipt Date: 20191024
  Transmission Date: 20200122
  Serious: Yes (Other)
  Sender: FDA-Public Use
  Company Number: IN-PFIZER INC-2019456938

PATIENT
  Age: 74 Year
  Sex: Male

DRUGS (6)
  1. DYTOR PLUS [Concomitant]
     Dosage: UNK
  2. GOODFLO [Concomitant]
     Dosage: 75 MG, UNK
  3. PANTOCID [Concomitant]
     Dosage: 40 MG, UNK
  4. STORVAS [Concomitant]
     Dosage: 20 MG, UNK
  5. EMBETA XR [Concomitant]
     Dosage: 50 MG, UNK
  6. FRAGMIN [Suspect]
     Active Substance: DALTEPARIN SODIUM
     Dosage: 5000 IU, 1X/DAY

REACTIONS (1)
  - Infarction [Unknown]
